FAERS Safety Report 10868636 (Version 1)
Quarter: 2015Q1

REPORT INFORMATION
  Report Type: Spontaneous
  Country: US (occurrence: US)
  Receive Date: 20150225
  Receipt Date: 20150225
  Transmission Date: 20150721
  Serious: No
  Sender: FDA-Public Use
  Company Number: US-EISAI MEDICAL RESEARCH-EC-2015-004056

PATIENT
  Sex: Female

DRUGS (2)
  1. ACIPHEX [Suspect]
     Active Substance: RABEPRAZOLE SODIUM
     Indication: GASTROOESOPHAGEAL REFLUX DISEASE
     Dosage: UNKNOWN
     Route: 048
     Dates: end: 2014
  2. ACIPHEX [Suspect]
     Active Substance: RABEPRAZOLE SODIUM
     Route: 048
     Dates: start: 20141028

REACTIONS (1)
  - Drug ineffective [Unknown]
